FAERS Safety Report 23068035 (Version 1)
Quarter: 2023Q4

REPORT INFORMATION
  Report Type: Spontaneous
  Country: DE (occurrence: DE)
  Receive Date: 20231016
  Receipt Date: 20231016
  Transmission Date: 20240110
  Serious: Yes (Hospitalization, Other)
  Sender: FDA-Public Use
  Company Number: DE-ALKEM LABORATORIES LIMITED-CA-ALKEM-2023-07026

PATIENT
  Age: 49 Year
  Sex: Male

DRUGS (14)
  1. DULOXETINE HYDROCHLORIDE [Suspect]
     Active Substance: DULOXETINE HYDROCHLORIDE
     Indication: Antidepressant therapy
     Dosage: UNK
     Route: 065
  2. DULOXETINE HYDROCHLORIDE [Suspect]
     Active Substance: DULOXETINE HYDROCHLORIDE
     Indication: Major depression
     Dosage: UNK (TAPERED OFF)
     Route: 065
  3. QUETIAPINE FUMARATE [Suspect]
     Active Substance: QUETIAPINE FUMARATE
     Indication: Antipsychotic therapy
     Dosage: UNK (AUGMENTATION)
     Route: 065
  4. QUETIAPINE FUMARATE [Suspect]
     Active Substance: QUETIAPINE FUMARATE
     Indication: Major depression
  5. SUMATRIPTAN SUCCINATE [Interacting]
     Active Substance: SUMATRIPTAN SUCCINATE
     Indication: Migraine
     Dosage: UNK, QD (DAILY)
     Route: 065
  6. SUMATRIPTAN SUCCINATE [Interacting]
     Active Substance: SUMATRIPTAN SUCCINATE
     Indication: Migraine prophylaxis
     Dosage: UNK, QD (HIGH DOSES)
     Route: 065
  7. AMITRIPTYLINE [Suspect]
     Active Substance: AMITRIPTYLINE
     Indication: Antidepressant therapy
     Dosage: UNK
     Route: 065
  8. AMITRIPTYLINE [Suspect]
     Active Substance: AMITRIPTYLINE
     Indication: Major depression
     Dosage: UNK (TAPERED OFF)
     Route: 065
  9. FROVATRIPTAN [Interacting]
     Active Substance: FROVATRIPTAN
     Indication: Migraine
     Dosage: UNK, QD (DAILY)
     Route: 065
  10. FROVATRIPTAN [Interacting]
     Active Substance: FROVATRIPTAN
     Indication: Migraine prophylaxis
     Dosage: UNK, QD (HIGH DOSES)
     Route: 065
  11. MIRTAZAPINE [Suspect]
     Active Substance: MIRTAZAPINE
     Indication: Antidepressant therapy
     Dosage: UNK
     Route: 065
  12. MIRTAZAPINE [Suspect]
     Active Substance: MIRTAZAPINE
     Indication: Major depression
     Dosage: UNK (TAPERED OFF)
     Route: 065
  13. ZOLMITRIPTAN [Interacting]
     Active Substance: ZOLMITRIPTAN
     Indication: Migraine
     Dosage: UNK, QD (DAILY)
     Route: 065
  14. ZOLMITRIPTAN [Interacting]
     Active Substance: ZOLMITRIPTAN
     Indication: Migraine prophylaxis
     Dosage: UNK, QD (HIGH DOSES)
     Route: 065

REACTIONS (6)
  - Major depression [Recovered/Resolved]
  - Withdrawal syndrome [Unknown]
  - Drug-disease interaction [Unknown]
  - Self-medication [Unknown]
  - Drug ineffective [Unknown]
  - Overdose [Unknown]

NARRATIVE: CASE EVENT DATE: 20080101
